FAERS Safety Report 9362355 (Version 1)
Quarter: 2013Q2

REPORT INFORMATION
  Report Type: Spontaneous
  Country: US (occurrence: US)
  Receive Date: 20130622
  Receipt Date: 20130622
  Transmission Date: 20140414
  Serious: Yes (Hospitalization)
  Sender: FDA-Public Use
  Company Number: US-US-EMD SERONO, INC.-7053995

PATIENT
  Age: 17 Year
  Sex: Female

DRUGS (2)
  1. REBIF [Suspect]
     Indication: MULTIPLE SCLEROSIS
     Route: 058
     Dates: start: 201008
  2. REBIF [Suspect]
     Route: 058
     Dates: start: 201010, end: 20110412

REACTIONS (4)
  - Multiple sclerosis relapse [Recovered/Resolved]
  - Metrorrhagia [Unknown]
  - Normal newborn [Recovered/Resolved]
  - Foetal exposure during pregnancy [Recovered/Resolved]
